FAERS Safety Report 4491834-6 (Version None)
Quarter: 2004Q4

REPORT INFORMATION
  Report Type: 
  Country: None (occurrence: None)
  Receive Date: 20041101
  Receipt Date: 20041018
  Transmission Date: 20050328
  Serious: Yes (Death, Hospitalization)
  Sender: FDA-Public Use
  Company Number: A-US2004-07796

PATIENT
  Age: 62 Year
  Sex: Male

DRUGS (6)
  1. TRACLEER [Suspect]
     Indication: PULMONARY HYPERTENSION
     Dosage: 62.5 MG, BID, ORAL
     Route: 048
     Dates: start: 20040901, end: 20041001
  2. LISINOPRIL [Concomitant]
  3. DIGOXIN [Concomitant]
  4. LASIX [Concomitant]
  5. COREG [Concomitant]
  6. WARFARIN SODIUM [Concomitant]

REACTIONS (7)
  - ABDOMINAL PAIN [None]
  - CARDIAC FAILURE CONGESTIVE [None]
  - DIALYSIS [None]
  - DYSPNOEA [None]
  - HYPOXIA [None]
  - PANCREATITIS [None]
  - RENAL FAILURE ACUTE [None]
